FAERS Safety Report 6634589-9 (Version None)
Quarter: 2010Q1

REPORT INFORMATION
  Report Type: 
  Country: None (occurrence: None)
  Receive Date: 20100315
  Receipt Date: 20100308
  Transmission Date: 20100710
  Serious: Yes (Hospitalization)
  Sender: FDA-Public Use
  Company Number: A0849731A

PATIENT
  Sex: Male

DRUGS (6)
  1. AVANDIA [Suspect]
     Indication: DIABETES MELLITUS
     Dosage: 4MG PER DAY
     Route: 048
     Dates: end: 20080101
  2. DIOVAN [Concomitant]
  3. NORVASC [Concomitant]
  4. XANAX [Concomitant]
  5. COREG [Concomitant]
  6. ZOCOR [Concomitant]

REACTIONS (2)
  - ANGINA PECTORIS [None]
  - CHEST PAIN [None]
